FAERS Safety Report 5175442-X (Version None)
Quarter: 2006Q4

REPORT INFORMATION
  Report Type: 
  Country: None (occurrence: None)
  Receive Date: 20061215
  Receipt Date: 20061205
  Transmission Date: 20070319
  Serious: Yes (Hospitalization)
  Sender: FDA-Public Use
  Company Number: PHMT2006CA02260

PATIENT
  Age: 50 Year
  Sex: Male

DRUGS (1)
  1. CLOZARIL [Suspect]
     Route: 048
     Dates: start: 20061107, end: 20061127

REACTIONS (6)
  - DELIRIUM [None]
  - MYOCARDITIS [None]
  - PERICARDIAL EFFUSION [None]
  - PERICARDITIS [None]
  - PYREXIA [None]
  - TROPONIN INCREASED [None]
